FAERS Safety Report 6372029-8 (Version None)
Quarter: 2009Q3

REPORT INFORMATION
  Report Type: 
  Country: None (occurrence: None)
  Receive Date: 20090917
  Receipt Date: 20090904
  Transmission Date: 20100115
  Serious: Yes (Death, Hospitalization)
  Sender: FDA-Public Use
  Company Number: IDA-00254

PATIENT
  Age: 62 Year
  Sex: Male

DRUGS (7)
  1. SUMIAL       (PROPRANOLOL HYDROCHLORIDE) STRENGTH: 10MG [Suspect]
     Indication: HEPATIC ENCEPHALOPATHY
     Dosage: 40 MG QOD ORAL FORMULATION: TABLET
     Route: 048
     Dates: start: 20090403, end: 20090807
  2. ATORVASTATIN [Suspect]
     Indication: HYPERCHOLESTEROLAEMIA
     Dosage: 40 MG DAILY ORAL FORMULATION:
     Dates: end: 20090807
  3. OMEPRAZOLE [Concomitant]
  4. RIFAXIMIN [Concomitant]
  5. AMLODIPINE BESYLATE [Concomitant]
  6. ALOPURINOL ^BELUPO^ (ALLOPURINOL) [Concomitant]
  7. ANTABUSE [Concomitant]

REACTIONS (5)
  - DRUG INTERACTION [None]
  - HEPATIC FAILURE [None]
  - METABOLIC ACIDOSIS [None]
  - RENAL FAILURE ACUTE [None]
  - RHABDOMYOLYSIS [None]
